FAERS Safety Report 9184137 (Version 1)
Quarter: 2012Q4

REPORT INFORMATION
  Report Type: 
  Country: IT (occurrence: IT)
  Receive Date: 20121031
  Receipt Date: 20121031
  Transmission Date: 20130627
  Serious: Yes (Other)
  Sender: FDA-Public Use
  Company Number: IT-ABBOTT-12P-083-1001617-00

PATIENT
  Age: 17 None
  Sex: Male

DRUGS (1)
  1. DEPAKINE [Suspect]
     Indication: EPILEPSY
     Dosage: 1100 mg daily
     Route: 048
     Dates: start: 20091001, end: 20121007

REACTIONS (3)
  - Coagulopathy [Unknown]
  - Thrombocytopenia [Unknown]
  - Neutropenia [Unknown]
